FAERS Safety Report 9920231 (Version 1)
Quarter: 2014Q1

REPORT INFORMATION
  Report Type: Spontaneous
  Country: IN (occurrence: IN)
  Receive Date: 20140224
  Receipt Date: 20140224
  Transmission Date: 20141002
  Serious: Yes (Other)
  Sender: FDA-Public Use
  Company Number: IN-GE HEALTHCARE MEDICAL DIAGNOSTICS-OMPQ-PR-1402S-0160

PATIENT
  Age: 84 Year
  Sex: Female
  Weight: 60 kg

DRUGS (3)
  1. OMNIPAQUE [Suspect]
     Indication: DIZZINESS
     Route: 042
     Dates: start: 20140208, end: 20140208
  2. OMNIPAQUE [Suspect]
     Indication: BALANCE DISORDER
  3. OMNIPAQUE [Suspect]
     Indication: DIAGNOSTIC PROCEDURE

REACTIONS (2)
  - Loss of consciousness [Unknown]
  - Rash [Recovered/Resolved]
